FAERS Safety Report 20136400 (Version 2)
Quarter: 2021Q4

REPORT INFORMATION
  Report Type: Spontaneous
  Country: IT (occurrence: IT)
  Receive Date: 20211201
  Receipt Date: 20211218
  Transmission Date: 20220303
  Serious: Yes (Other)
  Sender: FDA-Public Use
  Company Number: IT-LUPIN PHARMACEUTICALS INC.-2021-23382

PATIENT
  Age: 40 Year
  Sex: Female

DRUGS (9)
  1. METHYLPREDNISOLONE [Suspect]
     Active Substance: METHYLPREDNISOLONE
     Indication: Relapsing-remitting multiple sclerosis
     Dosage: 1 GRAM FOR 5 DAYS
     Route: 042
  2. LAMOTRIGINE [Suspect]
     Active Substance: LAMOTRIGINE
     Indication: Relapsing-remitting multiple sclerosis
     Dosage: 200 MILLIGRAM, BID
     Route: 065
  3. LAMOTRIGINE [Suspect]
     Active Substance: LAMOTRIGINE
     Dosage: 100 MILLIGRAM, BID ( REDUCED TO 100MG TWICE DAILY)
     Route: 065
  4. PREGABALIN [Suspect]
     Active Substance: PREGABALIN
     Indication: Relapsing-remitting multiple sclerosis
     Dosage: 75 MILLIGRAM, BID
     Route: 065
  5. PREGABALIN [Suspect]
     Active Substance: PREGABALIN
     Dosage: 75 MILLIGRAM, QD (REDUCED TO 75MG ONCE DAILY)
     Route: 065
  6. LACOSAMIDE [Suspect]
     Active Substance: LACOSAMIDE
     Indication: Relapsing-remitting multiple sclerosis
     Dosage: 100 MILLIGRAM, BID
     Route: 065
  7. LACOSAMIDE [Suspect]
     Active Substance: LACOSAMIDE
     Dosage: 100 MILLIGRAM, QD (REDUCED TO LACOSAMIDE 100MG ONCE DAILY)
     Route: 065
  8. GLATIRAMER ACETATE [Concomitant]
     Active Substance: GLATIRAMER ACETATE
     Indication: Relapsing-remitting multiple sclerosis
     Dosage: 40 MILLIGRAM THRICE A WEEK
     Route: 058
  9. GADOLINIUM [Concomitant]
     Active Substance: GADOLINIUM
     Indication: Relapsing-remitting multiple sclerosis
     Route: 065

REACTIONS (4)
  - Drug ineffective [Unknown]
  - Cognitive disorder [Recovering/Resolving]
  - Asthenia [Recovering/Resolving]
  - Somnolence [Recovering/Resolving]
